FAERS Safety Report 9483537 (Version 2)
Quarter: 2013Q3

REPORT INFORMATION
  Report Type: Spontaneous
  Country: CA (occurrence: CA)
  Receive Date: 20130828
  Receipt Date: 20130828
  Transmission Date: 20140515
  Serious: Yes (Other)
  Sender: FDA-Public Use
  Company Number: CA-AMGEN-KDL275755

PATIENT
  Age: 64 Year
  Sex: Female

DRUGS (11)
  1. ENBREL [Suspect]
     Indication: RHEUMATOID ARTHRITIS
     Dosage: UNK UNK, QWK
     Route: 058
     Dates: start: 20080211, end: 20080428
  2. CELECOXIB [Concomitant]
     Dosage: UNK UNK, UNK
  3. PAROXETINE HYDROCHLORIDE [Concomitant]
     Dosage: UNK UNK, UNK
  4. LEVOTHRYROXINE SODIUM [Concomitant]
     Dosage: UNK UNK, UNK
  5. METHOTREXATE [Concomitant]
     Dosage: UNK UNK, UNK
  6. CALCIUM [Concomitant]
  7. ISONIAZID [Concomitant]
  8. ACETYLSALICYLIC ACID [Concomitant]
  9. MIRTAZAPINE [Concomitant]
  10. PYRIDOXINE HYDROCHLORIDE [Concomitant]
     Dosage: UNK UNK, UNK
     Route: 048
  11. FOLIC ACID [Concomitant]

REACTIONS (6)
  - Drug hypersensitivity [Recovered/Resolved]
  - Injection site pain [Unknown]
  - Injection site reaction [Recovered/Resolved]
  - Injection site erythema [Recovered/Resolved]
  - Injection site pruritus [Recovered/Resolved]
  - Injection site swelling [Recovered/Resolved]
